FAERS Safety Report 20783112 (Version 2)
Quarter: 2022Q2

REPORT INFORMATION
  Report Type: Spontaneous
  Country: US (occurrence: US)
  Receive Date: 20220504
  Receipt Date: 20220603
  Transmission Date: 20220721
  Serious: No
  Sender: FDA-Public Use
  Company Number: US-RISINGPHARMA-US-2022RISSPO00430

PATIENT
  Age: 86 Year
  Sex: Female
  Weight: 180 kg

DRUGS (3)
  1. PREGABALIN [Suspect]
     Active Substance: PREGABALIN
     Indication: Fibromyalgia
     Route: 048
  2. TRAMADOL [Concomitant]
     Active Substance: TRAMADOL
     Indication: Pain
     Route: 065
  3. TYLENOL [Concomitant]
     Active Substance: ACETAMINOPHEN
     Indication: Product used for unknown indication
     Route: 065

REACTIONS (9)
  - Nasal dryness [Unknown]
  - Nasal crusting [Unknown]
  - Skin disorder [Unknown]
  - Dysphagia [Unknown]
  - Gastric disorder [Unknown]
  - Rash [Unknown]
  - Skin ulcer [Unknown]
  - Dyspnoea [Unknown]
  - Dry mouth [Unknown]
